FAERS Safety Report 10222613 (Version 2)
Quarter: 2014Q2

REPORT INFORMATION
  Report Type: Spontaneous
  Country: IT (occurrence: IT)
  Receive Date: 20140606
  Receipt Date: 20140606
  Transmission Date: 20141212
  Serious: Yes (Other)
  Sender: FDA-Public Use
  Company Number: IT-WATSON-2013B-01570

PATIENT
  Age: 72 Year
  Sex: Female
  Weight: 68 kg

DRUGS (3)
  1. FLUOROURACIL (UNKNOWN) [Suspect]
     Indication: GASTRIC CANCER
     Dosage: 5500 MG, CYCLICAL
     Route: 042
     Dates: start: 20121127, end: 20130116
  2. CARBOPLATIN (UNKNOWN) [Suspect]
     Dosage: 350 MG, CYCLICAL
     Route: 042
     Dates: start: 20121127, end: 20130116
  3. HERCEPTIN [Suspect]
     Indication: GASTRIC CANCER
     Dosage: 450 MG, CYCLICAL
     Route: 042
     Dates: start: 20121127, end: 20130116

REACTIONS (2)
  - Neutropenia [Recovered/Resolved]
  - Mucosal inflammation [Recovered/Resolved]
